FAERS Safety Report 9158841 (Version 3)
Quarter: 2013Q3

REPORT INFORMATION
  Report Type: Spontaneous
  Country: US (occurrence: US)
  Receive Date: 20130313
  Receipt Date: 20130716
  Transmission Date: 20140515
  Serious: Yes (Other)
  Sender: FDA-Public Use
  Company Number: US-AMGEN-USASP2013016537

PATIENT
  Age: 87 Year
  Sex: Female
  Weight: 59.86 kg

DRUGS (2)
  1. ENBREL [Suspect]
     Indication: RHEUMATOID ARTHRITIS
     Dosage: 50 MG, QWK
     Route: 058
     Dates: start: 20110506
  2. PLAQUENIL                          /00072602/ [Concomitant]
     Dosage: 3.2 MG, QD

REACTIONS (1)
  - Macular degeneration [Not Recovered/Not Resolved]
